FAERS Safety Report 5155198-7 (Version None)
Quarter: 2006Q4

REPORT INFORMATION
  Report Type: 
  Country: None (occurrence: None)
  Receive Date: 20061121
  Receipt Date: 20061113
  Transmission Date: 20070319
  Serious: Yes (Other)
  Sender: FDA-Public Use
  Company Number: SE-JNJFOC-20061103284

PATIENT
  Age: 63 Year
  Sex: Male

DRUGS (3)
  1. RISPERDAL [Suspect]
     Route: 048
  2. RISPERDAL [Suspect]
     Indication: DRUG USE FOR UNKNOWN INDICATION
     Route: 048
  3. HALDOL [Concomitant]

REACTIONS (4)
  - GAIT DISTURBANCE [None]
  - SWELLING FACE [None]
  - SWOLLEN TONGUE [None]
  - URINARY INCONTINENCE [None]
